FAERS Safety Report 6761219-8 (Version None)
Quarter: 2010Q2

REPORT INFORMATION
  Report Type: 
  Country: None (occurrence: None)
  Receive Date: 20100608
  Receipt Date: 20100601
  Transmission Date: 20101027
  Serious: Yes (Hospitalization)
  Sender: FDA-Public Use
  Company Number: JP-ROCHE-707788

PATIENT
  Sex: Female
  Weight: 50 kg

DRUGS (19)
  1. TOCILIZUMAB [Suspect]
     Indication: RHEUMATOID ARTHRITIS
     Route: 041
     Dates: start: 20090811, end: 20090811
  2. TOCILIZUMAB [Suspect]
     Route: 041
     Dates: start: 20090908, end: 20090908
  3. TOCILIZUMAB [Suspect]
     Route: 041
     Dates: start: 20091006, end: 20091006
  4. TOCILIZUMAB [Suspect]
     Route: 041
     Dates: start: 20091104, end: 20091104
  5. TOCILIZUMAB [Suspect]
     Route: 041
     Dates: start: 20091201, end: 20091201
  6. METHOTREXATE [Concomitant]
     Route: 048
  7. ISCOTIN [Concomitant]
     Route: 048
     Dates: start: 20090714
  8. PREDNISOLONE [Concomitant]
     Route: 048
     Dates: end: 20090601
  9. PREDONINE [Concomitant]
     Route: 048
     Dates: start: 20090602
  10. FOLIAMIN [Concomitant]
     Route: 048
  11. CATLEP [Concomitant]
     Dosage: FORM: TAPE
     Route: 062
  12. BONALON [Concomitant]
     Route: 048
  13. ADALAT [Concomitant]
     Route: 050
  14. SIMVASTATIN [Concomitant]
     Route: 048
  15. ALFAROL [Concomitant]
     Route: 048
  16. VOLTAREN [Concomitant]
     Dosage: DOSE FORM: PERORAL AGENT
     Route: 048
  17. CANDESARTAN CILEXETIL [Concomitant]
     Route: 048
  18. PYDOXAL [Concomitant]
     Route: 048
  19. TAKEPRON [Concomitant]
     Route: 048

REACTIONS (4)
  - ERYTHEMA [None]
  - LYMPHOMA [None]
  - SKIN ULCER [None]
  - VISION BLURRED [None]
